FAERS Safety Report 8611340-4 (Version None)
Quarter: 2012Q3

REPORT INFORMATION
  Report Type: 
  Country: None (occurrence: None)
  Receive Date: 20120822
  Receipt Date: 20120821
  Transmission Date: 20120928
  Serious: Yes (Death, Hospitalization, Other)
  Sender: FDA-Public Use
  Company Number: FR-PFIZER INC-2012197095

PATIENT
  Age: 87 Year
  Sex: Male

DRUGS (17)
  1. PREVISCAN [Suspect]
     Indication: ATRIAL FIBRILLATION
     Dosage: UNK
     Route: 048
     Dates: start: 20120101, end: 20120626
  2. CORDARONE [Suspect]
     Indication: ATRIAL FIBRILLATION
     Dosage: 6 DF, DAILY
     Route: 048
     Dates: start: 20120629, end: 20120629
  3. CORDARONE [Suspect]
     Dosage: 4 DF, DAILY
     Route: 048
     Dates: start: 20120630, end: 20120701
  4. RAMIPRIL [Concomitant]
     Dosage: 2.5 MG, UNK
     Dates: end: 20120626
  5. ATORVASTATIN [Concomitant]
     Dosage: 40 MG, UNK
  6. ALDACTONE [Concomitant]
     Dosage: 25 MG, UNK
  7. ASPEGIC 1000 [Suspect]
     Dosage: 1 G, 3X/DAY
     Route: 048
     Dates: start: 20120702, end: 20120702
  8. PERMIXON [Concomitant]
     Dosage: 160 MG, UNK
  9. BISOPROLOL FUMARATE [Concomitant]
     Dosage: 1.25 MG, UNK
  10. ALFUZOSIN HYDROCHLORIDE [Concomitant]
     Dosage: 10 MG, UNK
  11. ASPEGIC 1000 [Suspect]
     Indication: PAIN
     Dosage: 1 G, DAILY
     Route: 042
     Dates: start: 20120627
  12. ASPIRIN [Suspect]
     Dosage: 75 MG, SINGLE
     Route: 048
     Dates: start: 20120629, end: 20120629
  13. LOVENOX [Suspect]
     Indication: ATRIAL FIBRILLATION
     Dosage: 0.6 ML, 2X/DAY
     Route: 058
     Dates: start: 20120629, end: 20120702
  14. PLAVIX [Suspect]
     Dosage: 75 MG, SINGLE
     Route: 048
     Dates: start: 20120629, end: 20120629
  15. CLOPIDOGREL BISULFATE AND ASPIRIN [Suspect]
     Indication: ACUTE CORONARY SYNDROME
     Dosage: 75 MG, UNK
     Route: 048
     Dates: start: 20120101, end: 20120626
  16. LASIX [Concomitant]
     Dosage: 40 MG, UNK
  17. CORDARONE [Suspect]
     Dosage: 1 DF, DAILY
     Route: 048
     Dates: start: 20120702, end: 20120702

REACTIONS (10)
  - PULMONARY OEDEMA [None]
  - AORTIC INTRAMURAL HAEMATOMA [None]
  - PERITONEAL HAEMORRHAGE [None]
  - PERICARDITIS [None]
  - PERICARDIAL EFFUSION [None]
  - RENAL FAILURE [None]
  - PLEURAL EFFUSION [None]
  - MUSCLE HAEMORRHAGE [None]
  - CARDIO-RESPIRATORY ARREST [None]
  - ANAEMIA [None]
